FAERS Safety Report 8455552-1 (Version None)
Quarter: 2012Q2

REPORT INFORMATION
  Report Type: 
  Country: None (occurrence: None)
  Receive Date: 20120621
  Receipt Date: 20120615
  Transmission Date: 20120825
  Serious: Yes (Death, Other)
  Sender: FDA-Public Use
  Company Number: FR-PFIZER INC-2012107837

PATIENT
  Age: 44 Year
  Sex: Male

DRUGS (4)
  1. XANAX [Concomitant]
     Indication: ANXIETY
  2. XANAX [Concomitant]
     Indication: SLEEP DISORDER
     Dosage: 0.5 TO 1.5 (NO UNIT PROVIDED) TOTAL DAILY
     Route: 048
     Dates: start: 20120303
  3. EFFEXOR XR [Suspect]
     Dosage: 112.5 MG, 1X/DAY
     Dates: start: 20120418
  4. EFFEXOR XR [Suspect]
     Indication: DEPRESSION
     Dosage: 75 MG, 1X/DAY
     Dates: start: 20120326, end: 20120417

REACTIONS (1)
  - COMPLETED SUICIDE [None]
